FAERS Safety Report 16268592 (Version 2)
Quarter: 2019Q2

REPORT INFORMATION
  Report Type: Spontaneous
  Country: US (occurrence: US)
  Receive Date: 20190503
  Receipt Date: 20190621
  Transmission Date: 20190711
  Serious: Yes (Hospitalization, Other)
  Sender: FDA-Public Use
  Company Number: US-BAYER-2019-084835

PATIENT
  Age: 26 Year
  Sex: Female

DRUGS (1)
  1. SKYLA [Suspect]
     Active Substance: LEVONORGESTREL
     Indication: INTRAUTERINE CONTRACEPTION
     Dosage: 14 MCG/24HR, CONT
     Route: 015
     Dates: start: 20180712, end: 20190408

REACTIONS (10)
  - Abortion spontaneous [None]
  - Drug ineffective [None]
  - Fatigue [None]
  - Haemorrhage in pregnancy [None]
  - Abdominal pain lower [None]
  - Depressed mood [None]
  - Emotional distress [None]
  - Pain [None]
  - Pregnancy with contraceptive device [None]
  - Nausea [None]

NARRATIVE: CASE EVENT DATE: 201904
